FAERS Safety Report 7643414 (Version 3)
Quarter: 2013Q2

REPORT INFORMATION
  Report Type: Report from Study
  Country: MX (occurrence: MX)
  Receive Date: 20101027
  Receipt Date: 20130625
  Transmission Date: 20140414
  Serious: Yes (Hospitalization, Other)
  Sender: FDA-Public Use
  Company Number: PHHY2010MX69416

PATIENT
  Age: 70 Year
  Sex: Female

DRUGS (1)
  1. CO-DIOVAN [Suspect]
     Indication: HYPERTENSION
     Dosage: 2 DF(80/12.5 MG), DIALY
     Route: 048

REACTIONS (6)
  - Cystitis [Not Recovered/Not Resolved]
  - Fibrosis [Recovering/Resolving]
  - Vomiting [Not Recovered/Not Resolved]
  - Diarrhoea [Not Recovered/Not Resolved]
  - Renal failure [Recovering/Resolving]
  - Blood pressure increased [Not Recovered/Not Resolved]
